FAERS Safety Report 8127018-X (Version None)
Quarter: 2012Q1

REPORT INFORMATION
  Report Type: 
  Country: None (occurrence: None)
  Receive Date: 20120210
  Receipt Date: 20120131
  Transmission Date: 20120608
  Serious: Yes (Other)
  Sender: FDA-Public Use
  Company Number: JP-SANOFI-AVENTIS-2012SA007246

PATIENT
  Weight: 3 kg

DRUGS (3)
  1. CANDESARTAN CILEXETIL [Suspect]
     Route: 064
  2. AMARYL [Suspect]
     Route: 064
  3. PIOGLITAZONE [Suspect]
     Route: 064

REACTIONS (2)
  - SKIN HYPOPLASIA [None]
  - FOETAL EXPOSURE DURING PREGNANCY [None]
